FAERS Safety Report 8407656-7 (Version None)
Quarter: 2012Q2

REPORT INFORMATION
  Report Type: 
  Country: None (occurrence: None)
  Receive Date: 20120604
  Receipt Date: 20120524
  Transmission Date: 20120825
  Serious: Yes (Other)
  Sender: FDA-Public Use
  Company Number: CN-JNJFOC-20120521406

PATIENT

DRUGS (2)
  1. PALIPERIDONE [Suspect]
     Indication: SCHIZOPHRENIA
     Dosage: 3-9 MG
     Route: 048
  2. PALIPERIDONE [Suspect]
     Route: 048

REACTIONS (2)
  - HEPATIC FUNCTION ABNORMAL [None]
  - BLOOD TEST ABNORMAL [None]
